FAERS Safety Report 6496565-9 (Version None)
Quarter: 2009Q4

REPORT INFORMATION
  Report Type: 
  Country: None (occurrence: None)
  Receive Date: 20091210
  Receipt Date: 20091124
  Transmission Date: 20100525
  Serious: Yes (Hospitalization, Other)
  Sender: FDA-Public Use
  Company Number: AUR-APL-2009-01434

PATIENT
  Age: 63 Year
  Sex: Female

DRUGS (3)
  1. ALENDRONATE SODIUM [Suspect]
     Indication: OSTEOPOROSIS
  2. ESOMEPRAZOLE SODIUM (NEXIUM) [Suspect]
  3. CALCIUM [Concomitant]

REACTIONS (2)
  - ASTHENIA [None]
  - FEMUR FRACTURE [None]
